FAERS Safety Report 6475461-7 (Version None)
Quarter: 2009Q4

REPORT INFORMATION
  Report Type: 
  Country: None (occurrence: None)
  Receive Date: 20091204
  Receipt Date: 20091124
  Transmission Date: 20100525
  Serious: Yes (Hospitalization, Other)
  Sender: FDA-Public Use
  Company Number: PHHY2009NL50229

PATIENT
  Age: 58 Year
  Sex: Male

DRUGS (4)
  1. CLOZAPINE [Suspect]
     Indication: SCHIZOAFFECTIVE DISORDER
     Dosage: 300 MG DAILY
  2. VALPROIC ACID [Concomitant]
     Dosage: UNK
  3. BIPERIDEN HYDROCHLORIDE TAB [Concomitant]
  4. BENZODIAZEPINES [Concomitant]

REACTIONS (14)
  - ANTIPSYCHOTIC DRUG LEVEL INCREASED [None]
  - APATHY [None]
  - BEDRIDDEN [None]
  - DEHYDRATION [None]
  - DELIRIUM [None]
  - DRUG TOXICITY [None]
  - DYSARTHRIA [None]
  - FAECAL INCONTINENCE [None]
  - GASTROENTERITIS [None]
  - INFECTION [None]
  - LOSS OF CONSCIOUSNESS [None]
  - MALAISE [None]
  - RESTLESSNESS [None]
  - SEDATION [None]
